FAERS Safety Report 18056248 (Version 2)
Quarter: 2020Q3

REPORT INFORMATION
  Report Type: Report from Study
  Country: CA (occurrence: CA)
  Receive Date: 20200722
  Receipt Date: 20200724
  Transmission Date: 20201103
  Serious: Yes (Death, Other)
  Sender: FDA-Public Use
  Company Number: CA-PFIZER INC-2020278822

PATIENT
  Age: 65 Year
  Sex: Female
  Weight: 62 kg

DRUGS (17)
  1. ASA [Concomitant]
     Active Substance: ASPIRIN
     Dosage: 81 MG
     Route: 065
  2. ACETAMINOPHEN. [Concomitant]
     Active Substance: ACETAMINOPHEN
     Dosage: 1000 MG
     Route: 048
  3. ACTEMRA [Suspect]
     Active Substance: TOCILIZUMAB
     Dosage: 480 MG, MONTHLY
     Route: 042
  4. ACTEMRA [Suspect]
     Active Substance: TOCILIZUMAB
     Dosage: 400 MG, MONTHLY
     Route: 042
  5. LEVOTHYROXIN [Concomitant]
     Active Substance: LEVOTHYROXINE
  6. ROSUVASTATIN. [Concomitant]
     Active Substance: ROSUVASTATIN
     Dosage: 5 MG
     Route: 065
  7. ACTEMRA [Suspect]
     Active Substance: TOCILIZUMAB
     Dosage: 440 MG, MONTHLY
     Route: 042
  8. RITUXIMAB. [Suspect]
     Active Substance: RITUXIMAB
     Indication: NEUROMYELITIS OPTICA SPECTRUM DISORDER
     Dosage: 1000 MG
     Route: 042
  9. ACTEMRA [Suspect]
     Active Substance: TOCILIZUMAB
     Dosage: 400 MG, MONTHLY
     Route: 042
  10. DIPHENHYDRAMINE HYDROCHLORIDE. [Concomitant]
     Active Substance: DIPHENHYDRAMINE HYDROCHLORIDE
     Dosage: 50 MG
     Route: 048
  11. PLAVIX [Concomitant]
     Active Substance: CLOPIDOGREL BISULFATE
     Dosage: 75 MG
     Route: 065
  12. ACTEMRA [Suspect]
     Active Substance: TOCILIZUMAB
     Indication: NEUROMYELITIS OPTICA SPECTRUM DISORDER
     Dosage: 480 MG, MONTHLY
     Route: 042
  13. AMLODIPINE [Concomitant]
     Active Substance: AMLODIPINE BESYLATE
     Dosage: 2.5 MG
     Route: 065
  14. PREDNISONE. [Concomitant]
     Active Substance: PREDNISONE
  15. BABY ASPIRIN [Concomitant]
     Active Substance: ASPIRIN
     Dosage: UNK, 1X/DAY
     Route: 065
  16. METHYLPREDNISOLONE SODIUM SUCCINATE. [Suspect]
     Active Substance: METHYLPREDNISOLONE SODIUM SUCCINATE
     Indication: PREMEDICATION
     Dosage: 100 MG
     Route: 042
  17. ACTEMRA [Suspect]
     Active Substance: TOCILIZUMAB
     Indication: NEUROMYELITIS OPTICA SPECTRUM DISORDER
     Dosage: 400 MG, MONTHLY
     Route: 042

REACTIONS (35)
  - Bronchitis [Fatal]
  - Heart rate decreased [Fatal]
  - Hypoaesthesia [Fatal]
  - Weight decreased [Fatal]
  - Off label use [Unknown]
  - Musculoskeletal stiffness [Fatal]
  - Chest pain [Fatal]
  - Gastrointestinal pain [Fatal]
  - Pain in extremity [Fatal]
  - Angina pectoris [Fatal]
  - Arterial occlusive disease [Fatal]
  - Asthenia [Fatal]
  - Chest discomfort [Fatal]
  - Nausea [Fatal]
  - Tooth fracture [Fatal]
  - Arthralgia [Fatal]
  - Decreased appetite [Fatal]
  - Influenza like illness [Fatal]
  - Myalgia [Fatal]
  - Paraesthesia [Fatal]
  - Somnolence [Fatal]
  - Headache [Fatal]
  - Microvascular coronary artery disease [Fatal]
  - Neuralgia [Fatal]
  - Rheumatoid arthritis [Fatal]
  - Death [Fatal]
  - Hypertension [Fatal]
  - Neurological symptom [Fatal]
  - Abdominal pain [Fatal]
  - Balance disorder [Fatal]
  - Blood pressure systolic increased [Fatal]
  - Malaise [Fatal]
  - Pain [Fatal]
  - Urinary tract infection [Fatal]
  - Intentional product use issue [Unknown]
